FAERS Safety Report 14949629 (Version 1)
Quarter: 2018Q3

REPORT INFORMATION
  Report Type: Spontaneous
  Country: US (occurrence: US)
  Receive Date: 20180529
  Receipt Date: 20180529
  Transmission Date: 20181010
  Serious: No
  Sender: FDA-Public Use
  Company Number: US-HAEMONETICS CORP-2048621

PATIENT
  Age: 46 Year
  Sex: Female
  Weight: 95.91 kg

DRUGS (2)
  1. HAEMONETICS ANTICOAGULANT SODIUM CITRATE [Suspect]
     Active Substance: TRISODIUM CITRATE DIHYDRATE
     Indication: APHERESIS
     Route: 042
     Dates: start: 20160620, end: 20160620
  2. 0.9% SODIUM CHLORIDE INJECTION, USP [Concomitant]
     Active Substance: SODIUM CHLORIDE
     Route: 042
     Dates: start: 20160620, end: 20160620

REACTIONS (3)
  - Device leakage [None]
  - Volume blood decreased [None]
  - Device malfunction [Unknown]

NARRATIVE: CASE EVENT DATE: 20160620
